FAERS Safety Report 7510389-2 (Version None)
Quarter: 2011Q2

REPORT INFORMATION
  Report Type: 
  Country: None (occurrence: None)
  Receive Date: 20110527
  Receipt Date: 20110525
  Transmission Date: 20111010
  Serious: Yes (Other)
  Sender: FDA-Public Use
  Company Number: FR-MERCK-1105FRA00114

PATIENT
  Age: 24 Year
  Sex: Male

DRUGS (2)
  1. FLUTICASONE PROPIONATE [Concomitant]
     Indication: ASTHMA
     Route: 065
  2. SINGULAIR [Suspect]
     Indication: ASTHMA
     Route: 048
     Dates: start: 20110101, end: 20110201

REACTIONS (2)
  - AFFECTIVE DISORDER [None]
  - SUICIDAL IDEATION [None]
